FAERS Safety Report 14154369 (Version 1)
Quarter: 2017Q4

REPORT INFORMATION
  Report Type: Spontaneous
  Country: US (occurrence: US)
  Receive Date: 20171102
  Receipt Date: 20171102
  Transmission Date: 20180321
  Serious: No
  Sender: FDA-Public Use
  Company Number: US-PFIZER INC-2017473116

PATIENT
  Sex: Male
  Weight: 95 kg

DRUGS (2)
  1. DILANTIN [Suspect]
     Active Substance: PHENYTOIN
     Dosage: 500 MG, DAILY
  2. DILANTIN [Suspect]
     Active Substance: PHENYTOIN
     Indication: PARTIAL SEIZURES
     Dosage: 300 MG, 2X/DAY
     Dates: start: 201611

REACTIONS (7)
  - Dizziness [Unknown]
  - Feeling abnormal [Unknown]
  - Neuropathy peripheral [Recovering/Resolving]
  - Toxicity to various agents [Unknown]
  - Hypoaesthesia [Not Recovered/Not Resolved]
  - Anticonvulsant drug level increased [Recovering/Resolving]
  - Paraesthesia oral [Unknown]

NARRATIVE: CASE EVENT DATE: 201611
